FAERS Safety Report 25095310 (Version 1)
Quarter: 2025Q1

REPORT INFORMATION
  Report Type: Spontaneous
  Country: ZA (occurrence: ZA)
  Receive Date: 20250319
  Receipt Date: 20250319
  Transmission Date: 20250409
  Serious: Yes (Other)
  Sender: ORGANON
  Company Number: ZA-ORGANON-O2503ZAF001043

PATIENT
  Sex: Female

DRUGS (2)
  1. ETONOGESTREL [Suspect]
     Active Substance: ETONOGESTREL
     Route: 059
     Dates: start: 2023
  2. EFAVIRENZ [Suspect]
     Active Substance: EFAVIRENZ

REACTIONS (3)
  - Pregnancy with implant contraceptive [Unknown]
  - Unintended pregnancy [Unknown]
  - Labelled drug-drug interaction issue [Unknown]
